FAERS Safety Report 7957013-2 (Version None)
Quarter: 2011Q4

REPORT INFORMATION
  Report Type: 
  Country: None (occurrence: None)
  Receive Date: 20111205
  Receipt Date: 20111205
  Transmission Date: 20120403
  Serious: No
  Sender: FDA-Public Use
  Company Number: None

PATIENT
  Age: 66 Year
  Sex: Female
  Weight: 76 kg

DRUGS (1)
  1. TRIMETHOPRIM [Suspect]
     Indication: URINARY TRACT INFECTION
     Dosage: ONE TABLET
     Route: 048
     Dates: start: 20111107, end: 20111109

REACTIONS (3)
  - MALAISE [None]
  - CONDITION AGGRAVATED [None]
  - DRUG PRESCRIBING ERROR [None]
